FAERS Safety Report 7246399-2 (Version None)
Quarter: 2011Q1

REPORT INFORMATION
  Report Type: 
  Country: None (occurrence: None)
  Receive Date: 20110126
  Receipt Date: 20100225
  Transmission Date: 20110831
  Serious: No
  Sender: FDA-Public Use
  Company Number: US-BAUSCH-2010BL001130

PATIENT
  Age: 59 Year
  Sex: Female

DRUGS (3)
  1. SYNTHROID [Concomitant]
     Indication: THYROIDITIS
  2. ZYLET [Suspect]
     Indication: CORNEAL ABRASION
     Route: 047
     Dates: start: 20100202, end: 20100206
  3. ZYLET [Suspect]
     Route: 047
     Dates: start: 20100202, end: 20100206

REACTIONS (8)
  - OCULAR HYPERAEMIA [None]
  - LACRIMATION INCREASED [None]
  - WHEEZING [None]
  - CONDITION AGGRAVATED [None]
  - PRURITUS [None]
  - DYSPNOEA [None]
  - URTICARIA [None]
  - NASAL INFLAMMATION [None]
